FAERS Safety Report 7759424-7 (Version None)
Quarter: 2011Q3

REPORT INFORMATION
  Report Type: 
  Country: None (occurrence: None)
  Receive Date: 20110915
  Receipt Date: 20110901
  Transmission Date: 20111222
  Serious: Yes (Hospitalization)
  Sender: FDA-Public Use
  Company Number: DSA_47600_2011

PATIENT
  Sex: Female

DRUGS (3)
  1. BUPROPION HYDROCHLORIDE [Suspect]
     Indication: PRODUCT USED FOR UNKNOWN INDICATION
     Dosage: 3600 MG, NOT THE PRESCRIBED AMOUNT ORAL
     Route: 048
     Dates: start: 20101027, end: 20101027
  2. SINGULAIR [Concomitant]
  3. PREDNISONE [Concomitant]

REACTIONS (10)
  - ABNORMAL BEHAVIOUR [None]
  - INSOMNIA [None]
  - FEELING ABNORMAL [None]
  - AGITATION [None]
  - DISSOCIATION [None]
  - CONFUSIONAL STATE [None]
  - CONVULSION [None]
  - ACCIDENTAL DRUG INTAKE BY CHILD [None]
  - OVERDOSE [None]
  - ANXIETY [None]
